FAERS Safety Report 9119313 (Version 1)
Quarter: 2013Q1

REPORT INFORMATION
  Report Type: Spontaneous
  Country: US (occurrence: None)
  Receive Date: 20130130
  Receipt Date: 20130130
  Transmission Date: 20140127
  Serious: Yes (Other)
  Sender: FDA-Public Use
  Company Number: 2013AP000398

PATIENT
  Age: 54 Year
  Sex: Female

DRUGS (19)
  1. CYCLOSPORINE [Suspect]
     Indication: ACUTE GRAFT VERSUS HOST DISEASE
     Route: 048
     Dates: end: 201110
  2. PREDNISONE [Suspect]
     Indication: ACUTE GRAFT VERSUS HOST DISEASE
  3. CYCLOPHOSPHAMIDE [Concomitant]
  4. VINCRISTINE [Concomitant]
  5. DOXORUBICIN [Concomitant]
  6. DEXAMETHASONE [Concomitant]
  7. IMATINIB [Concomitant]
  8. FLUDARABINE [Concomitant]
  9. MELPHALAN [Concomitant]
  10. TACROLIMUS [Concomitant]
  11. METHOTREXATE [Concomitant]
  12. CORTICOSTEROIDS [Concomitant]
  13. MYCOPHENOLATE MOFETIL [Concomitant]
  14. RITUXIMAB [Concomitant]
  15. BUDESONIDE [Concomitant]
  16. SIROLIMUS [Concomitant]
  17. IMATINIB [Concomitant]
  18. NILOTINIB [Concomitant]
  19. CELLCEPT [Concomitant]

REACTIONS (5)
  - Myopathy [None]
  - Renal failure acute [None]
  - Chronic graft versus host disease in skin [None]
  - Chronic graft versus host disease [None]
  - Nephropathy toxic [None]
